FAERS Safety Report 7250388-1 (Version None)
Quarter: 2011Q1

REPORT INFORMATION
  Report Type: 
  Country: None (occurrence: None)
  Receive Date: 20110118
  Receipt Date: 20110107
  Transmission Date: 20110831
  Serious: Yes (Hospitalization)
  Sender: FDA-Public Use
  Company Number: 2010MA003767

PATIENT
  Age: 66 Year
  Sex: Female

DRUGS (6)
  1. STEMETIL [Concomitant]
  2. ZOPICLONE [Concomitant]
  3. CITALOPRAM HYDROBROMIDE [Suspect]
     Indication: DEPRESSION
     Dosage: 20 MG; QD; PO
     Route: 048
     Dates: end: 20100722
  4. CLOZARIL [Suspect]
     Indication: SCHIZOPHRENIA
     Dosage: 400 MG; QD; PO
     Route: 048
     Dates: start: 20091002
  5. ISMO [Concomitant]
  6. SIMVASTATIN [Concomitant]

REACTIONS (8)
  - OESOPHAGITIS [None]
  - URINARY TRACT INFECTION [None]
  - HAEMATEMESIS [None]
  - GASTROINTESTINAL ULCER [None]
  - FALL [None]
  - DIZZINESS [None]
  - LOSS OF CONSCIOUSNESS [None]
  - UPPER GASTROINTESTINAL HAEMORRHAGE [None]
